FAERS Safety Report 9838563 (Version 2)
Quarter: 2014Q1

REPORT INFORMATION
  Report Type: Spontaneous
  Country: US (occurrence: US)
  Receive Date: 20140123
  Receipt Date: 20140227
  Transmission Date: 20141002
  Serious: Yes (Other)
  Sender: FDA-Public Use
  Company Number: US-PFIZER INC-2014020349

PATIENT
  Age: 81 Year
  Sex: Female
  Weight: 74.83 kg

DRUGS (2)
  1. CELEBREX [Suspect]
     Indication: BACK PAIN
     Dosage: 200 MG, 1X/DAY
     Route: 048
  2. LORTAB [Concomitant]
     Dosage: UNK

REACTIONS (7)
  - Femur fracture [Unknown]
  - Fall [Unknown]
  - Claustrophobia [Unknown]
  - Dyspnoea [Unknown]
  - Gait disturbance [Unknown]
  - Limb asymmetry [Unknown]
  - Drug ineffective [Unknown]
